FAERS Safety Report 22695257 (Version 9)
Quarter: 2024Q2

REPORT INFORMATION
  Report Type: Report from Study
  Country: GB (occurrence: GB)
  Receive Date: 20230712
  Receipt Date: 20240531
  Transmission Date: 20240715
  Serious: Yes (Other)
  Sender: FDA-Public Use
  Company Number: GB-CELLTRION INC.-2023GB013844

PATIENT

DRUGS (15)
  1. BEVACIZUMAB [Suspect]
     Active Substance: BEVACIZUMAB
     Indication: Hepatocellular carcinoma
     Dosage: 1100 MG
     Route: 065
     Dates: start: 20230501
  2. ATEZOLIZUMAB [Suspect]
     Active Substance: ATEZOLIZUMAB
     Indication: Hepatocellular carcinoma
     Dosage: 1200 MG EVERY 3 WEEKS, MOST RECENT DOSE OF STUDY DRUG ADMINISTERED ON 25/MAY/2023
     Route: 042
     Dates: start: 20230501
  3. AMLODIPINE [Concomitant]
     Active Substance: AMLODIPINE BESYLATE
     Dosage: MEDICAL HISTORY;
     Dates: start: 20200203
  4. ASPIRIN [Concomitant]
     Active Substance: ASPIRIN
     Dosage: MEDICAL HISTORY;
     Dates: start: 20130320
  5. ATORVASTATIN [Concomitant]
     Active Substance: ATORVASTATIN
     Dosage: MEDICAL HISTORY;
     Dates: start: 20150331
  6. CHLORPHENIRAMINE [Concomitant]
     Active Substance: CHLORPHENIRAMINE
     Dosage: UNK
     Dates: start: 20230615
  7. DOXAZOSIN MESYLATE [Concomitant]
     Active Substance: DOXAZOSIN MESYLATE
     Dosage: MEDICAL HISTORY;
     Dates: start: 20230314
  8. FINASTERIDE [Concomitant]
     Active Substance: FINASTERIDE
     Dosage: MEDICAL HISTORY;
     Dates: start: 20220218
  9. FLUOROURACIL [Concomitant]
     Active Substance: FLUOROURACIL
     Dosage: UNK
     Dates: start: 202308
  10. LANSOPRAZOLE [Concomitant]
     Active Substance: LANSOPRAZOLE
     Dosage: MEDICAL HISTORY;
     Dates: start: 20210331
  11. LANSOPRAZOLE [Concomitant]
     Active Substance: LANSOPRAZOLE
     Dosage: UNK
     Dates: start: 20231013
  12. LOSARTAN [Concomitant]
     Active Substance: LOSARTAN
     Dosage: MEDICAL HISTORY;
     Dates: start: 20070620
  13. SENNA [Concomitant]
     Active Substance: SENNA LEAF\SENNOSIDES\SENNOSIDES A AND B
     Dosage: UNK, EVERY 1 DAY
     Dates: start: 20101012
  14. LACTULOSE [Concomitant]
     Active Substance: LACTULOSE
     Dosage: UNK
     Dates: start: 20231013
  15. PREDNISOLONE [Concomitant]
     Active Substance: PREDNISOLONE
     Dosage: UNK
     Dates: start: 20231013

REACTIONS (10)
  - Chronic kidney disease [Not Recovered/Not Resolved]
  - Proteinuria [Not Recovered/Not Resolved]
  - Aspartate aminotransferase increased [Not Recovered/Not Resolved]
  - Oedema peripheral [Not Recovered/Not Resolved]
  - Blood creatine increased [Not Recovered/Not Resolved]
  - Pruritus [Not Recovered/Not Resolved]
  - Gamma-glutamyltransferase increased [Recovered/Resolved]
  - Alanine aminotransferase increased [Not Recovered/Not Resolved]
  - Blood alkaline phosphatase increased [Not Recovered/Not Resolved]
  - Intentional product use issue [Unknown]

NARRATIVE: CASE EVENT DATE: 20230524
